FAERS Safety Report 4928847-3 (Version None)
Quarter: 2006Q1

REPORT INFORMATION
  Report Type: 
  Country: None (occurrence: None)
  Receive Date: 20060301
  Receipt Date: 20060207
  Transmission Date: 20060701
  Serious: No
  Sender: FDA-Public Use
  Company Number: PHEH2006US01897

PATIENT
  Sex: Female

DRUGS (1)
  1. FEMARA [Suspect]

REACTIONS (2)
  - ARTHRALGIA [None]
  - HOT FLUSH [None]
